FAERS Safety Report 8073204-7 (Version None)
Quarter: 2012Q1

REPORT INFORMATION
  Report Type: 
  Country: None (occurrence: None)
  Receive Date: 20120126
  Receipt Date: 20120119
  Transmission Date: 20120608
  Serious: Yes (Other)
  Sender: FDA-Public Use
  Company Number: CH-JNJFOC-20120103502

PATIENT
  Age: 47 Year
  Sex: Female
  Weight: 112 kg

DRUGS (1)
  1. SIMPONI [Suspect]
     Indication: ANKYLOSING SPONDYLITIS
     Route: 058
     Dates: start: 20110907, end: 20111006

REACTIONS (8)
  - MUSCLE SPASMS [None]
  - DYSAESTHESIA [None]
  - ARTHRALGIA [None]
  - HEPATIC ENZYME INCREASED [None]
  - PARAESTHESIA [None]
  - BLOOD CREATINE PHOSPHOKINASE INCREASED [None]
  - RESTLESS LEGS SYNDROME [None]
  - HYPERTONIA [None]
